FAERS Safety Report 11626951 (Version 1)
Quarter: 2015Q4

REPORT INFORMATION
  Report Type: Spontaneous
  Country: US (occurrence: US)
  Receive Date: 20151013
  Receipt Date: 20151013
  Transmission Date: 20160304
  Serious: Yes (Hospitalization, Other)
  Sender: FDA-Public Use
  Company Number: US-RB PHARMACEUTICALS LIMITED-RB-075549-2015

PATIENT
  Sex: Male
  Weight: 2.32 kg

DRUGS (5)
  1. BUPRENORPHINE GENERIC TAB [Suspect]
     Active Substance: BUPRENORPHINE
     Dosage: 4 MG DAILY FOR 5 MONTHS
     Route: 064
     Dates: start: 201404, end: 20140904
  2. SUBOXONE [Suspect]
     Active Substance: BUPRENORPHINE HYDROCHLORIDE\NALOXONE HYDROCHLORIDE
     Indication: DRUG DEPENDENCE
     Dosage: 8 MG, QD FOR 10 WEEKS
     Route: 064
     Dates: start: 201312, end: 201402
  3. NICOTINE. [Suspect]
     Active Substance: NICOTINE
     Indication: NICOTINE DEPENDENCE
     Dosage: 5 CIGARETTES DAILY
     Route: 064
     Dates: start: 201312, end: 20140904
  4. BUPRENORPHINE GENERIC TAB [Suspect]
     Active Substance: BUPRENORPHINE
     Indication: DRUG DEPENDENCE
     Dosage: 8 MG, QD FOR 2 MONTHS
     Route: 064
     Dates: start: 201402, end: 201404
  5. PRENATAL VITAMINS [Suspect]
     Active Substance: VITAMINS
     Indication: PREGNANCY
     Dosage: ONE DAILY
     Route: 064
     Dates: end: 20140904

REACTIONS (4)
  - Irritability [Recovered/Resolved]
  - Foetal exposure during pregnancy [Recovered/Resolved]
  - Gastrooesophageal reflux disease [Not Recovered/Not Resolved]
  - Abdominal pain [Not Recovered/Not Resolved]

NARRATIVE: CASE EVENT DATE: 201312
